FAERS Safety Report 9300938 (Version 10)
Quarter: 2014Q2

REPORT INFORMATION
  Report Type: Spontaneous
  Country: US (occurrence: US)
  Receive Date: 20130521
  Receipt Date: 20140626
  Transmission Date: 20141212
  Serious: Yes (Death, Hospitalization)
  Sender: FDA-Public Use
  Company Number: US-CELGENEUS-163-21880-12063952

PATIENT
  Age: 54 Year
  Sex: Female
  Weight: 78 kg

DRUGS (47)
  1. REVLIMID [Suspect]
     Indication: PLASMA CELL MYELOMA
     Dosage: 25 MILLIGRAM
     Route: 048
     Dates: start: 20120531, end: 20120613
  2. REVLIMID [Suspect]
     Dosage: 10 MILLIGRAM
     Route: 048
     Dates: start: 20120615
  3. REVLIMID [Suspect]
     Dosage: 10 MILLIGRAM
     Route: 048
     Dates: start: 20120625, end: 20120628
  4. DEXAMETHASONE [Suspect]
     Indication: PLASMA CELL MYELOMA
     Dosage: 8 MILLIGRAM
     Route: 041
     Dates: start: 20120531
  5. DEXAMETHASONE [Suspect]
     Dosage: 28 MILLIGRAM
     Route: 048
     Dates: start: 20120531
  6. DEXAMETHASONE [Suspect]
     Dosage: 8 MILLIGRAM
     Route: 041
     Dates: start: 20120625, end: 20120628
  7. DEXAMETHASONE [Suspect]
     Dosage: 28 MILLIGRAM
     Route: 048
     Dates: start: 20120625, end: 20120628
  8. ELOTUZUMAB [Suspect]
     Indication: PLASMA CELL MYELOMA
     Dosage: 10 MILLIGRAM/KILOGRAM
     Route: 041
     Dates: start: 20120531
  9. ELOTUZUMAB [Suspect]
     Dosage: 10 MILLIGRAM/KILOGRAM
     Route: 041
     Dates: start: 20120625, end: 20120628
  10. ELOTUZUMAB [Suspect]
     Route: 041
     Dates: start: 20120705
  11. HUMALOG [Concomitant]
     Indication: PRODUCT USED FOR UNKNOWN INDICATION
     Route: 065
     Dates: start: 20120625, end: 20120628
  12. LOVENOX [Concomitant]
     Indication: PRODUCT USED FOR UNKNOWN INDICATION
     Route: 065
     Dates: start: 20120625, end: 20120628
  13. METFORMIN [Concomitant]
     Indication: PRODUCT USED FOR UNKNOWN INDICATION
     Route: 065
     Dates: end: 20120625
  14. METFORMIN [Concomitant]
     Route: 065
     Dates: start: 20120629
  15. VALACYCLOVIR [Concomitant]
     Indication: ADVERSE EVENT
     Route: 065
     Dates: start: 20120627
  16. POTASSIUM CHLORIDE [Concomitant]
     Indication: ADVERSE EVENT
     Route: 065
     Dates: start: 20120607
  17. POTASSIUM CHLORIDE [Concomitant]
     Route: 065
     Dates: start: 20120625, end: 20120628
  18. POTASSIUM CHLORIDE [Concomitant]
     Route: 065
     Dates: start: 20120712, end: 20120712
  19. POTASSIUM CHLORIDE [Concomitant]
     Route: 065
     Dates: start: 20120726, end: 20120726
  20. SODIUM CHLORIDE [Concomitant]
     Indication: ADVERSE EVENT
     Route: 065
     Dates: start: 20120625, end: 20120628
  21. PROTONIX [Concomitant]
     Indication: ADVERSE EVENT
     Route: 065
     Dates: start: 20120625, end: 20120628
  22. FLAGYL [Concomitant]
     Indication: ADVERSE EVENT
     Route: 065
     Dates: start: 20120625, end: 20120627
  23. ASPIRIN [Concomitant]
     Indication: PRODUCT USED FOR UNKNOWN INDICATION
     Route: 065
     Dates: start: 20120531, end: 20121009
  24. TRAMADOL [Concomitant]
     Indication: PRODUCT USED FOR UNKNOWN INDICATION
     Route: 065
  25. LISINOPRIL [Concomitant]
     Indication: PRODUCT USED FOR UNKNOWN INDICATION
     Route: 065
  26. HCTZ [Concomitant]
     Indication: PRODUCT USED FOR UNKNOWN INDICATION
     Route: 065
  27. ZOFRAN [Concomitant]
     Indication: ADVERSE EVENT
     Route: 065
     Dates: start: 20120724, end: 20120801
  28. ZOFRAN [Concomitant]
     Dates: start: 20120812, end: 20120813
  29. PRILOSEC [Concomitant]
     Indication: PRODUCT USED FOR UNKNOWN INDICATION
     Route: 065
  30. PHENERGAN [Concomitant]
     Indication: PRODUCT USED FOR UNKNOWN INDICATION
     Route: 065
  31. LYRICA [Concomitant]
     Indication: PRODUCT USED FOR UNKNOWN INDICATION
     Route: 065
  32. LIDOCAINE [Concomitant]
     Indication: PRODUCT USED FOR UNKNOWN INDICATION
     Route: 065
  33. ELAVIL [Concomitant]
     Indication: PRODUCT USED FOR UNKNOWN INDICATION
     Route: 065
  34. AMBIEN [Concomitant]
     Indication: PRODUCT USED FOR UNKNOWN INDICATION
     Route: 065
  35. BISACODYL [Concomitant]
     Indication: PRODUCT USED FOR UNKNOWN INDICATION
     Route: 065
  36. ZOMETA [Concomitant]
     Indication: PRODUCT USED FOR UNKNOWN INDICATION
     Route: 065
     Dates: start: 20110701, end: 20110802
  37. ZOMETA [Concomitant]
     Route: 065
  38. VITAMIN D3 [Concomitant]
     Indication: PRODUCT USED FOR UNKNOWN INDICATION
     Route: 065
  39. MULTIVITAMIN [Concomitant]
     Indication: PRODUCT USED FOR UNKNOWN INDICATION
     Route: 065
  40. FISH OIL [Concomitant]
     Indication: PRODUCT USED FOR UNKNOWN INDICATION
     Route: 065
  41. CALTRATE [Concomitant]
     Indication: PRODUCT USED FOR UNKNOWN INDICATION
     Route: 065
  42. NORMAL SALINE [Concomitant]
     Indication: ADVERSE EVENT
     Route: 065
     Dates: start: 20120725, end: 20120725
  43. NORMAL SALINE [Concomitant]
     Route: 065
     Dates: start: 20120726, end: 20120726
  44. AZITHROMYCIN Z-PACK [Concomitant]
     Indication: ADVERSE EVENT
     Route: 065
     Dates: start: 20120815, end: 20120819
  45. MAGNESIUM [Concomitant]
     Indication: ADVERSE EVENT
     Route: 065
     Dates: start: 20120802, end: 20120802
  46. KCL [Concomitant]
     Indication: ADVERSE EVENT
     Route: 065
     Dates: start: 20120607
  47. VANCOMYCIN [Concomitant]
     Indication: ADVERSE EVENT
     Route: 065
     Dates: start: 20120627, end: 20120628

REACTIONS (3)
  - Plasma cell myeloma [Fatal]
  - Pyrexia [Recovered/Resolved]
  - Dehydration [Recovered/Resolved]
